FAERS Safety Report 7551286-6 (Version None)
Quarter: 2011Q2

REPORT INFORMATION
  Report Type: 
  Country: None (occurrence: None)
  Receive Date: 20110616
  Receipt Date: 20110613
  Transmission Date: 20111010
  Serious: Yes (Death)
  Sender: FDA-Public Use
  Company Number: PHHY2011US48907

PATIENT
  Sex: Male
  Weight: 77.551 kg

DRUGS (15)
  1. LISINOPRIL [Concomitant]
  2. MULTI-VITAMINS [Concomitant]
     Dosage: UNK
  3. EXJADE [Suspect]
     Indication: HAEMOCHROMATOSIS
     Dosage: 1500 MG DAILY
     Route: 048
     Dates: start: 20110413
  4. METFORMIN HCL [Concomitant]
     Dosage: UNK
  5. ALLOPURINOL [Concomitant]
     Dosage: UNK
  6. FUROSEMIDE [Concomitant]
     Dosage: UNK
  7. POTASSIUM CHLORIDE [Concomitant]
     Dosage: UNK
  8. FOLIC ACID [Concomitant]
     Dosage: UNK
  9. CYANOCOBALAMIN [Concomitant]
     Dosage: UNK
  10. ASPIRIN [Concomitant]
     Dosage: UNK
  11. DANAZOL [Concomitant]
     Dosage: UNK
  12. GLIMEPIRIDE [Concomitant]
     Dosage: UNK
  13. WELCHOL [Concomitant]
     Dosage: UNK
  14. SERTRALINE HYDROCHLORIDE [Concomitant]
     Dosage: UNK
  15. LEVSIN [Concomitant]
     Dosage: UNK

REACTIONS (1)
  - DEATH [None]
